FAERS Safety Report 19899621 (Version 1)
Quarter: 2021Q3

REPORT INFORMATION
  Report Type: Spontaneous
  Country: US (occurrence: US)
  Receive Date: 20210928
  Receipt Date: 20210928
  Transmission Date: 20211014
  Serious: Yes (Death)
  Sender: FDA-Public Use
  Company Number: None

PATIENT
  Age: 61 Year
  Sex: Male

DRUGS (36)
  1. ACCU?CHEK GUIDE TEST STRIPS [Concomitant]
  2. ATORVASTATIN [Concomitant]
     Active Substance: ATORVASTATIN
  3. MYCOPHENOLIC [Concomitant]
     Active Substance: MYCOPHENOLIC ACID
  4. PREDNISONE. [Concomitant]
     Active Substance: PREDNISONE
  5. BACTRIM [Concomitant]
     Active Substance: SULFAMETHOXAZOLE\TRIMETHOPRIM
  6. TACROLIMUS. [Concomitant]
     Active Substance: TACROLIMUS
  7. TRAMADOL. [Concomitant]
     Active Substance: TRAMADOL
  8. ACCU?CHEK FASTCLIX LANCETS [Concomitant]
  9. LOKELAM PACKETS [Concomitant]
  10. NORCO [Concomitant]
     Active Substance: ACETAMINOPHEN\HYDROCODONE BITARTRATE
  11. LANTUS SOLOSTAR [Concomitant]
     Active Substance: INSULIN GLARGINE
  12. ALLOPURINOL. [Concomitant]
     Active Substance: ALLOPURINOL
  13. CARVEDILOL. [Concomitant]
     Active Substance: CARVEDILOL
  14. ELIQUIS [Concomitant]
     Active Substance: APIXABAN
  15. INSULIN ASPART FLEXPEN INJECTION [Concomitant]
  16. ZOFRAN [Concomitant]
     Active Substance: ONDANSETRON HYDROCHLORIDE
  17. TACROLIMUS 1 MG [Suspect]
     Active Substance: TACROLIMUS
     Indication: RENAL TRANSPLANT
     Route: 048
     Dates: start: 20210126
  18. MYCOPHENOLATE 180MG DR [Suspect]
     Active Substance: MYCOPHENOLIC ACID
     Indication: RENAL TRANSPLANT
     Route: 048
     Dates: start: 20210126
  19. DIFFICID [Concomitant]
  20. DILTIAZEM. [Concomitant]
     Active Substance: DILTIAZEM
  21. FAMOTIDINE. [Concomitant]
     Active Substance: FAMOTIDINE
  22. MAG?OXIDE [Concomitant]
     Active Substance: MAGNESIUM OXIDE
  23. MYCOPHENOLATE [Concomitant]
     Active Substance: MYCOPHENOLIC ACID
  24. MYCOPHENOLIC ACID. [Concomitant]
     Active Substance: MYCOPHENOLIC ACID
  25. ACCU?CHEK GUIDE CARE KIT [Concomitant]
  26. CIPRODEX [Concomitant]
     Active Substance: CIPROFLOXACIN HYDROCHLORIDE\DEXAMETHASONE
  27. OTIC SUSPENSION [Concomitant]
  28. DOCUSATE SODIUM. [Concomitant]
     Active Substance: DOCUSATE SODIUM
  29. DOXAZOSIN [Concomitant]
     Active Substance: DOXAZOSIN MESYLATE
  30. NEOMYCIN/POLU/HC OTIC SUSPENSION [Concomitant]
  31. TAMSULOSIN [Concomitant]
     Active Substance: TAMSULOSIN
  32. B?D NANO 2ND GEN PEN NEEDLES [Concomitant]
  33. FLUCONAZOLE. [Concomitant]
     Active Substance: FLUCONAZOLE
  34. GABAPENTIN. [Concomitant]
     Active Substance: GABAPENTIN
  35. POLYETH GLYCOL 3350 NF POWEDER [Concomitant]
  36. VALGANCICLOVIR. [Concomitant]
     Active Substance: VALGANCICLOVIR

REACTIONS (1)
  - Cerebrovascular accident [None]

NARRATIVE: CASE EVENT DATE: 20210910
